FAERS Safety Report 25009811 (Version 2)
Quarter: 2025Q1

REPORT INFORMATION
  Report Type: Spontaneous
  Country: CA (occurrence: CA)
  Receive Date: 20250225
  Receipt Date: 20250326
  Transmission Date: 20250409
  Serious: Yes (Death, Life-Threatening, Hospitalization, Disabling, Congenital Anomaly, Other)
  Sender: CHATTEM
  Company Number: CA-SA-2025SA046383

PATIENT
  Age: 40 Year
  Sex: Female
  Weight: 96 kg

DRUGS (9)
  1. CALCIUM CARBONATE [Suspect]
     Active Substance: CALCIUM CARBONATE
     Indication: Product used for unknown indication
     Route: 065
  2. FOLIC ACID [Suspect]
     Active Substance: FOLIC ACID
     Indication: Rheumatoid arthritis
     Route: 048
  3. FOLIC ACID [Suspect]
     Active Substance: FOLIC ACID
     Route: 048
  4. FOLIC ACID [Suspect]
     Active Substance: FOLIC ACID
     Route: 048
  5. FOLIC ACID [Suspect]
     Active Substance: FOLIC ACID
     Route: 048
  6. FOLIC ACID [Suspect]
     Active Substance: FOLIC ACID
     Route: 048
  7. HYDROCORTISONE [Suspect]
     Active Substance: HYDROCORTISONE
     Indication: Rheumatoid arthritis
     Route: 065
  8. TRIAMCINOLONE ACETONIDE [Suspect]
     Active Substance: TRIAMCINOLONE ACETONIDE
     Indication: Rheumatoid arthritis
     Route: 014
  9. HYDROCORTISONE [Suspect]
     Active Substance: HYDROCORTISONE
     Indication: Rheumatoid arthritis

REACTIONS (5)
  - Infusion related reaction [Fatal]
  - Pericarditis [Fatal]
  - Rheumatoid arthritis [Fatal]
  - Systemic lupus erythematosus [Fatal]
  - Type 2 diabetes mellitus [Fatal]
